FAERS Safety Report 7418858-0 (Version None)
Quarter: 2011Q2

REPORT INFORMATION
  Report Type: 
  Country: None (occurrence: None)
  Receive Date: 20110415
  Receipt Date: 20110411
  Transmission Date: 20111010
  Serious: Yes (Other)
  Sender: FDA-Public Use
  Company Number: US-PFIZER INC-2011079580

PATIENT
  Age: 86 Year
  Sex: Female

DRUGS (1)
  1. ZITHROMAX [Suspect]
     Indication: BRONCHITIS
     Dosage: 500 MG, DAILY
     Route: 048
     Dates: start: 20110321, end: 20110325

REACTIONS (5)
  - DYSGEUSIA [None]
  - DEAFNESS [None]
  - VISION BLURRED [None]
  - NERVOUSNESS [None]
  - NAUSEA [None]
